FAERS Safety Report 9471836 (Version 1)
Quarter: 2013Q3

REPORT INFORMATION
  Report Type: Spontaneous
  Country: AU (occurrence: AU)
  Receive Date: 20130822
  Receipt Date: 20130822
  Transmission Date: 20140515
  Serious: Yes (Hospitalization)
  Sender: FDA-Public Use
  Company Number: AU-AMGEN-AUSSP2013058187

PATIENT
  Age: 53 Year
  Sex: Female

DRUGS (5)
  1. XGEVA [Suspect]
     Indication: PRODUCT USED FOR UNKNOWN INDICATION
     Route: 065
  2. CAELYX [Suspect]
     Indication: INVASIVE DUCTAL BREAST CARCINOMA
     Dosage: 40 UNK, QMO
     Route: 042
  3. DEXAMETHASONE [Concomitant]
     Route: 065
  4. LORATADINE [Concomitant]
     Route: 065
  5. SORBOLENE WITH 10% GLYCERINE [Concomitant]
     Route: 061

REACTIONS (3)
  - Rash [Recovered/Resolved]
  - Erythema [Recovered/Resolved]
  - Mucosal inflammation [Recovered/Resolved]
